FAERS Safety Report 9066923 (Version 1)
Quarter: 2013Q1

REPORT INFORMATION
  Report Type: Report from Study
  Country: US (occurrence: US)
  Receive Date: 20130201
  Receipt Date: 20130201
  Transmission Date: 20140127
  Serious: No
  Sender: FDA-Public Use
  Company Number: US-ABBOTT-12P-163-1028227-00

PATIENT
  Age: 63 Year
  Sex: Male

DRUGS (2)
  1. HUMIRA [Suspect]
     Indication: RHEUMATOID ARTHRITIS
  2. METHOTREXATE [Concomitant]
     Indication: RHEUMATOID ARTHRITIS
     Dosage: 205 MG #7 TABS WEEKLY

REACTIONS (9)
  - Device malfunction [Unknown]
  - Device malfunction [Unknown]
  - Injection site pain [Unknown]
  - Wrong technique in drug usage process [Unknown]
  - Incorrect dose administered [Unknown]
  - Inappropriate schedule of drug administration [Unknown]
  - Wrong technique in drug usage process [Unknown]
  - Incorrect dose administered [Unknown]
  - Device malfunction [Unknown]
